FAERS Safety Report 4981251-4 (Version None)
Quarter: 2006Q2

REPORT INFORMATION
  Report Type: 
  Country: None (occurrence: None)
  Receive Date: 20060424
  Receipt Date: 20060403
  Transmission Date: 20061013
  Serious: Yes (Other)
  Sender: FDA-Public Use
  Company Number: ZA-ABBOTT-06P-143-0329763-00

PATIENT
  Sex: Female

DRUGS (4)
  1. EPILIM [Suspect]
     Indication: BIPOLAR DISORDER
     Route: 048
     Dates: start: 20030630
  2. EPILIM [Suspect]
     Indication: MANIA
  3. CLONAZEPAM [Concomitant]
     Indication: BIPOLAR DISORDER
     Route: 048
  4. ZUCLOPENTHIXOL [Concomitant]
     Indication: MANIA
     Dosage: 2-10 MG AS NEEDED
     Route: 048

REACTIONS (4)
  - FOLATE DEFICIENCY [None]
  - LYMPHADENOPATHY [None]
  - NEUTROPENIA [None]
  - WHITE BLOOD CELL COUNT DECREASED [None]
